FAERS Safety Report 11557547 (Version 1)
Quarter: 2015Q3

REPORT INFORMATION
  Report Type: Spontaneous
  Country: GB (occurrence: GB)
  Receive Date: 20150926
  Receipt Date: 20150926
  Transmission Date: 20151125
  Serious: Yes (Disabling, Other)
  Sender: FDA-Public Use
  Company Number: GB-009507513-1509GBR012939

PATIENT
  Age: 56 Year
  Sex: Male
  Weight: 100 kg

DRUGS (7)
  1. LUMIGAN [Concomitant]
     Active Substance: BIMATOPROST
     Dosage: IN THE EVENING.
     Dates: start: 20150220, end: 20150619
  2. MEBEVERINE HYDROCHLORIDE [Concomitant]
     Active Substance: MEBEVERINE HYDROCHLORIDE
     Dosage: 30 MINUTES BEFORE FOOD.
     Dates: start: 20150220, end: 20150916
  3. SILDENAFIL CITRATE. [Concomitant]
     Active Substance: SILDENAFIL CITRATE
     Dosage: USE AS DIRECTED.
     Dates: start: 20140819
  4. AZOPT [Concomitant]
     Active Substance: BRINZOLAMIDE
     Dosage: 1 GTT, BID
     Dates: start: 20150220
  5. ATORVASTATIN [Concomitant]
     Active Substance: ATORVASTATIN
     Dosage: 1 DF, QD
     Dates: start: 20150916
  6. SIMVASTATIN. [Suspect]
     Active Substance: SIMVASTATIN
     Dates: start: 201406, end: 201503
  7. BIMATOPROST. [Concomitant]
     Active Substance: BIMATOPROST
     Dosage: 1 GTT, QD
     Dates: start: 20150619

REACTIONS (2)
  - Tendon rupture [Recovered/Resolved]
  - Myalgia [Unknown]

NARRATIVE: CASE EVENT DATE: 201503
